FAERS Safety Report 12673472 (Version 1)
Quarter: 2016Q3

REPORT INFORMATION
  Report Type: Report from Study
  Country: US (occurrence: US)
  Receive Date: 20160822
  Receipt Date: 20160822
  Transmission Date: 20161109
  Serious: Yes (Hospitalization)
  Sender: FDA-Public Use
  Company Number: US-JNJFOC-20160725198

PATIENT
  Age: 67 Year
  Sex: Female

DRUGS (1)
  1. IMBRUVICA [Suspect]
     Active Substance: IBRUTINIB
     Indication: MANTLE CELL LYMPHOMA
     Route: 048
     Dates: start: 20160409

REACTIONS (8)
  - Pericardial effusion [Unknown]
  - Fatigue [Unknown]
  - Pyrexia [Unknown]
  - Gait disturbance [Unknown]
  - Joint swelling [Unknown]
  - Dyspnoea [Unknown]
  - Heart rate irregular [Unknown]
  - Nasopharyngitis [Unknown]

NARRATIVE: CASE EVENT DATE: 2016
